FAERS Safety Report 21184527 (Version 3)
Quarter: 2022Q4

REPORT INFORMATION
  Report Type: Report from Study
  Country: FR (occurrence: FR)
  Receive Date: 20220808
  Receipt Date: 20221208
  Transmission Date: 20230112
  Serious: Yes (Hospitalization, Disabling)
  Sender: FDA-Public Use
  Company Number: FR-NOVARTISPH-NVSC2022FR178451

PATIENT
  Age: 84 Year
  Sex: Male
  Weight: 67.8 kg

DRUGS (7)
  1. PLUVICTO [Suspect]
     Active Substance: LUTETIUM LU-177 VIPIVOTIDE TETRAXETAN
     Indication: Prostate cancer
     Dosage: 7190 MBQ
     Route: 065
     Dates: start: 20220321
  2. PLUVICTO [Suspect]
     Active Substance: LUTETIUM LU-177 VIPIVOTIDE TETRAXETAN
     Dosage: 7280 MBQ
     Route: 065
     Dates: start: 20220502
  3. PLUVICTO [Suspect]
     Active Substance: LUTETIUM LU-177 VIPIVOTIDE TETRAXETAN
     Dosage: 7361 MBQ
     Route: 042
     Dates: start: 20220708, end: 20220708
  4. DECAPEPTYL [Concomitant]
     Indication: Prostate cancer
     Dosage: 11.25 MG, Q3MO (PROLONGED RELEASE)
     Route: 065
  5. FUROSEMIDE [Concomitant]
     Active Substance: FUROSEMIDE
     Indication: Oedema peripheral
     Dosage: 40 MG, QD
     Route: 065
  6. FERROUS SULFATE [Concomitant]
     Active Substance: FERROUS SULFATE
     Indication: Iron deficiency
     Dosage: 80 MG, QD
     Route: 065
  7. BISOPROLOL [Concomitant]
     Active Substance: BISOPROLOL
     Indication: Hypertension
     Dosage: 2.5 MG, QD
     Route: 065

REACTIONS (5)
  - Vascular graft thrombosis [Unknown]
  - Peripheral arterial occlusive disease [Not Recovered/Not Resolved]
  - Peripheral coldness [Unknown]
  - Pain in extremity [Unknown]
  - Skin discolouration [Unknown]

NARRATIVE: CASE EVENT DATE: 20220803
